FAERS Safety Report 7897083-3 (Version None)
Quarter: 2011Q4

REPORT INFORMATION
  Report Type: 
  Country: None (occurrence: None)
  Receive Date: 20111104
  Receipt Date: 20111104
  Transmission Date: 20120403
  Serious: Yes (Other)
  Sender: FDA-Public Use
  Company Number: None

PATIENT
  Age: 49 Year
  Sex: Male
  Weight: 83.4619 kg

DRUGS (1)
  1. UNISOM [Suspect]
     Indication: INSOMNIA
     Dosage: 25MG ONCE MOUTH
     Route: 048
     Dates: start: 20111019, end: 20111019

REACTIONS (4)
  - SOMNOLENCE [None]
  - THERAPEUTIC RESPONSE DECREASED [None]
  - ABDOMINAL DISCOMFORT [None]
  - DEPRESSION [None]
